FAERS Safety Report 20583631 (Version 1)
Quarter: 2022Q1

REPORT INFORMATION
  Report Type: Spontaneous
  Country: US (occurrence: None)
  Receive Date: 20220311
  Receipt Date: 20220311
  Transmission Date: 20220424
  Serious: Yes (Hospitalization)
  Sender: FDA-Public Use
  Company Number: None

PATIENT
  Age: 68 Year
  Sex: Female

DRUGS (1)
  1. COPAXONE [Suspect]
     Active Substance: GLATIRAMER ACETATE
     Indication: Multiple sclerosis
     Dosage: 40MG 3 TIMES A WEEK
     Route: 058
     Dates: start: 20071105

REACTIONS (3)
  - Pneumonia [None]
  - Clostridium difficile infection [None]
  - Therapy interrupted [None]

NARRATIVE: CASE EVENT DATE: 20220223
